FAERS Safety Report 12901292 (Version 1)
Quarter: 2016Q4

REPORT INFORMATION
  Report Type: Report from Study
  Country: DE (occurrence: DE)
  Receive Date: 20161101
  Receipt Date: 20161101
  Transmission Date: 20170207
  Serious: Yes (Hospitalization)
  Sender: FDA-Public Use
  Company Number: DE-BIOGEN-2016BI00311543

PATIENT
  Age: 31 Year
  Sex: Female
  Weight: 47 kg

DRUGS (3)
  1. BRINTELLIX [Concomitant]
     Active Substance: VORTIOXETINE HYDROBROMIDE
     Indication: DEPRESSION
     Dosage: 5 MG / 10 MG
     Route: 065
     Dates: start: 20110101
  2. TECFIDERA [Suspect]
     Active Substance: DIMETHYL FUMARATE
     Indication: MULTIPLE SCLEROSIS
     Route: 048
     Dates: start: 20140414, end: 20150905
  3. THYROXINE [Concomitant]
     Active Substance: LEVOTHYROXINE
     Indication: HYPOTHYROIDISM
     Route: 048
     Dates: start: 20090901

REACTIONS (2)
  - Myalgia [Recovered/Resolved with Sequelae]
  - Neuralgia [Recovered/Resolved with Sequelae]

NARRATIVE: CASE EVENT DATE: 20150301
